FAERS Safety Report 7980562-8 (Version None)
Quarter: 2011Q4

REPORT INFORMATION
  Report Type: 
  Country: None (occurrence: None)
  Receive Date: 20111214
  Receipt Date: 20111213
  Transmission Date: 20120403
  Serious: Yes (Death, Hospitalization)
  Sender: FDA-Public Use
  Company Number: FR-ABBOTT-11P-056-0882891-00

PATIENT
  Age: 65 Year
  Sex: Male

DRUGS (3)
  1. DEPAKENE [Suspect]
     Indication: EPILEPSY
     Route: 048
     Dates: end: 20111012
  2. LAMOTRIGINE [Suspect]
     Indication: PRODUCT USED FOR UNKNOWN INDICATION
     Route: 048
     Dates: start: 20111012, end: 20111105
  3. DEPAKENE [Suspect]
     Route: 048
     Dates: start: 20111012, end: 20111105

REACTIONS (1)
  - STEVENS-JOHNSON SYNDROME [None]
